FAERS Safety Report 9141523 (Version 1)
Quarter: 2013Q1

REPORT INFORMATION
  Report Type: Spontaneous
  Country: US (occurrence: US)
  Receive Date: 20130305
  Receipt Date: 20130305
  Transmission Date: 20140127
  Serious: No
  Sender: FDA-Public Use
  Company Number: US-AMGEN-USASP2013008183

PATIENT
  Age: 61 Year
  Sex: Female

DRUGS (2)
  1. ENBREL [Suspect]
     Indication: PSORIATIC ARTHROPATHY
     Dosage: 50 MG, QWK
     Dates: start: 2005
  2. ENBREL [Suspect]

REACTIONS (4)
  - Pain [Recovered/Resolved]
  - Pyrexia [Recovered/Resolved]
  - Chest discomfort [Recovered/Resolved]
  - Influenza [Recovered/Resolved]
